FAERS Safety Report 21264062 (Version 2)
Quarter: 2022Q4

REPORT INFORMATION
  Report Type: Report from Study
  Country: CA (occurrence: CA)
  Receive Date: 20220829
  Receipt Date: 20221104
  Transmission Date: 20230113
  Serious: Yes (Other)
  Sender: FDA-Public Use
  Company Number: CA-JNJFOC-20220852651

PATIENT
  Age: 15 Year
  Sex: Female
  Weight: 90 kg

DRUGS (5)
  1. REMICADE [Suspect]
     Active Substance: INFLIXIMAB
     Indication: Colitis ulcerative
     Dosage: ON 24-AUG-2022, THE PATIENT RECEIVED 3RD INFUSION OF INFLIXIMAB, RECOMBINANT OF DOSE 500 MG AND COMP
     Route: 042
     Dates: start: 20220711
  2. REMICADE [Suspect]
     Active Substance: INFLIXIMAB
     Dosage: LATER WOULD GIVE EVERY 4 WEEKS
     Route: 042
     Dates: start: 2022
  3. PREDNISONE [Concomitant]
     Active Substance: PREDNISONE
     Indication: Product used for unknown indication
     Route: 065
  4. PREDNISONE [Concomitant]
     Active Substance: PREDNISONE
     Route: 065
  5. METHOTREXATE [Concomitant]
     Active Substance: METHOTREXATE
     Indication: Product used for unknown indication
     Dosage: 1.5 TABLETS DAILY
     Route: 065

REACTIONS (2)
  - Colitis ulcerative [Unknown]
  - Drug level decreased [Unknown]

NARRATIVE: CASE EVENT DATE: 20220101
